FAERS Safety Report 7146109-3 (Version None)
Quarter: 2010Q4

REPORT INFORMATION
  Report Type: 
  Country: None (occurrence: None)
  Receive Date: 20101208
  Receipt Date: 20101109
  Transmission Date: 20110411
  Serious: Yes (Other)
  Sender: FDA-Public Use
  Company Number: JP-MERCK-1011USA01634

PATIENT
  Age: 84 Year
  Sex: Female
  Weight: 31 kg

DRUGS (8)
  1. PEPCID [Suspect]
     Route: 048
  2. MEROPENEM [Concomitant]
     Route: 065
  3. MICAFUNGIN [Concomitant]
     Route: 065
  4. PIPERACILLIN SODIUM AND TAZOBACTAM SODIUM [Concomitant]
     Route: 065
  5. ALPHA1-PROTEINASE INHIBITOR [Concomitant]
     Indication: PANCREATITIS
     Route: 065
  6. ALPHA1-PROTEINASE INHIBITOR [Concomitant]
     Indication: DISSEMINATED INTRAVASCULAR COAGULATION
     Route: 065
  7. TEICOPLANIN [Concomitant]
     Route: 065
  8. CEFEPIME [Concomitant]
     Route: 065

REACTIONS (1)
  - ACINETOBACTER INFECTION [None]
